FAERS Safety Report 22094676 (Version 1)
Quarter: 2023Q1

REPORT INFORMATION
  Report Type: Spontaneous
  Country: GB (occurrence: GB)
  Receive Date: 20230314
  Receipt Date: 20230314
  Transmission Date: 20230417
  Serious: Yes (Other)
  Sender: FDA-Public Use
  Company Number: GB-MHRA-MED-202303012029084960-VWGCN

PATIENT
  Age: 76 Year
  Sex: Female
  Weight: 58 kg

DRUGS (3)
  1. ATORVASTATIN [Suspect]
     Active Substance: ATORVASTATIN
     Indication: Blood cholesterol increased
     Dosage: 20MG;
     Route: 065
     Dates: start: 20230119, end: 20230213
  2. LETROZOLE [Concomitant]
     Active Substance: LETROZOLE
     Indication: Adverse drug reaction
     Dates: start: 20180924
  3. LETROZOLE [Concomitant]
     Active Substance: LETROZOLE
     Indication: Breast cancer

REACTIONS (1)
  - Faeces pale [Recovered/Resolved]

NARRATIVE: CASE EVENT DATE: 20230210
